FAERS Safety Report 8362530-X (Version None)
Quarter: 2012Q2

REPORT INFORMATION
  Report Type: 
  Country: None (occurrence: None)
  Receive Date: 20120514
  Receipt Date: 20120501
  Transmission Date: 20120825
  Serious: Yes (Hospitalization)
  Sender: FDA-Public Use
  Company Number: 2012027368

PATIENT
  Age: 57 Year
  Sex: Male

DRUGS (8)
  1. METOPROLOL TARTRATE [Concomitant]
  2. FLUOXETINE [Concomitant]
  3. ISOSORBIDE MONONITRATE [Concomitant]
  4. RAMIPRIL [Concomitant]
  5. ACETYLSALICYLIC ACID (ACETYLSALICYLIC [Concomitant]
  6. ATORVASTATIN [Concomitant]
  7. FOLIC ACID [Concomitant]
  8. DALTEPARIN SODIUM [Suspect]
     Indication: LUNG NEOPLASM MALIGNANT
     Dosage: 5000 IU, 1X/DAY, SUBCUTANEOUS
     Route: 058
     Dates: start: 20110725, end: 20111121

REACTIONS (1)
  - ABDOMINAL PAIN [None]
